FAERS Safety Report 4599808-1 (Version None)
Quarter: 2005Q1

REPORT INFORMATION
  Report Type: 
  Country: None (occurrence: None)
  Receive Date: 20050304
  Receipt Date: 20050304
  Transmission Date: 20050727
  Serious: No
  Sender: FDA-Public Use
  Company Number: None

PATIENT
  Sex: Male
  Weight: 77.1115 kg

DRUGS (2)
  1. FLOMAX [Suspect]
     Indication: BENIGN PROSTATIC HYPERPLASIA
     Dosage: 1 DAY ORAL
     Route: 048
     Dates: start: 20040103, end: 20050302
  2. FLOMAX [Suspect]
     Indication: POLLAKIURIA
     Dosage: 1 DAY ORAL
     Route: 048
     Dates: start: 20040103, end: 20050302

REACTIONS (4)
  - CATARACT OPERATION [None]
  - IRIDOCELE [None]
  - IRIS DISORDER [None]
  - WOUND [None]
